FAERS Safety Report 4442766-0 (Version None)
Quarter: 2004Q3

REPORT INFORMATION
  Report Type: 
  Country: None (occurrence: None)
  Receive Date: 20040903
  Receipt Date: 20040614
  Transmission Date: 20050211
  Serious: Yes (Other)
  Sender: FDA-Public Use
  Company Number: 2004UW12288

PATIENT
  Age: 52 Year
  Sex: Male
  Weight: 106.5953 kg

DRUGS (2)
  1. CRESTOR [Suspect]
     Indication: BLOOD CHOLESTEROL INCREASED
     Dosage: 10 MG PO
     Route: 048
     Dates: start: 20040301
  2. BLOOD PRESSURE MEDICATION [Concomitant]

REACTIONS (4)
  - INFLUENZA LIKE ILLNESS [None]
  - LIVER DISORDER [None]
  - MUSCLE SPASMS [None]
  - MYALGIA [None]
